FAERS Safety Report 10199766 (Version 1)
Quarter: 2014Q2

REPORT INFORMATION
  Report Type: Report from Study
  Country: US (occurrence: US)
  Receive Date: 20140527
  Receipt Date: 20140527
  Transmission Date: 20141212
  Serious: Yes (Other)
  Sender: FDA-Public Use
  Company Number: PHEH2014US010463

PATIENT
  Sex: Female

DRUGS (3)
  1. GILENYA [Suspect]
     Indication: MULTIPLE SCLEROSIS
     Dosage: 0.5 MG, QD
     Route: 048
     Dates: start: 201103
  2. ADDERALL [Concomitant]
     Indication: FATIGUE
  3. AMPYRA [Concomitant]

REACTIONS (20)
  - Peroneal nerve palsy [Unknown]
  - Trigeminal neuralgia [Unknown]
  - Nystagmus [Unknown]
  - Fall [Unknown]
  - Gait spastic [Unknown]
  - Arthralgia [Unknown]
  - Peripheral swelling [Unknown]
  - Gait disturbance [Unknown]
  - Pain in extremity [Unknown]
  - Memory impairment [Unknown]
  - Blood cholesterol increased [Unknown]
  - Blood triglycerides increased [Unknown]
  - Glycosylated haemoglobin increased [Unknown]
  - Blood glucose increased [Unknown]
  - Blood thyroid stimulating hormone increased [Unknown]
  - Vibration test abnormal [Unknown]
  - Reflex test abnormal [Unknown]
  - Diarrhoea [Unknown]
  - Headache [Unknown]
  - Back pain [Unknown]
